FAERS Safety Report 7701864 (Version 2)
Quarter: 2012Q4

REPORT INFORMATION
  Report Type: Report from Study
  Country: BR (occurrence: BR)
  Receive Date: 20101209
  Receipt Date: 20121030
  Transmission Date: 20130627
  Serious: Yes (Hospitalization)
  Sender: FDA-Public Use
  Company Number: BR-AMGEN-BRASP2010007381

PATIENT
  Age: 52 Year
  Sex: Female
  Weight: 72 kg

DRUGS (3)
  1. ETANERCEPT [Suspect]
     Indication: RHEUMATOID ARTHRITIS
     Dosage: 50 mg, UNK every 15 days
     Route: 058
     Dates: start: 20100322, end: 201006
  2. ETANERCEPT [Suspect]
     Dosage: UNK
     Dates: end: 2012
  3. METHOTREXATE SODIUM [Suspect]
     Indication: RHEUMATOID ARTHRITIS
     Dosage: twice weekly
     Route: 048
     Dates: start: 2008

REACTIONS (7)
  - Pruritus [Unknown]
  - Hypersensitivity [Unknown]
  - Stomatitis [Recovered/Resolved]
  - Immune system disorder [Recovered/Resolved]
  - Oedema peripheral [Not Recovered/Not Resolved]
  - Pain [Not Recovered/Not Resolved]
  - Drug ineffective [Not Recovered/Not Resolved]
